FAERS Safety Report 4673517-2 (Version None)
Quarter: 2005Q2

REPORT INFORMATION
  Report Type: 
  Country: None (occurrence: None)
  Receive Date: 20050523
  Receipt Date: 20050510
  Transmission Date: 20051028
  Serious: Yes (Hospitalization)
  Sender: FDA-Public Use
  Company Number: 2005073073

PATIENT
  Sex: Male
  Weight: 1.474 kg

DRUGS (2)
  1. DOXORUBICIN HCL [Suspect]
     Indication: BREAST CANCER
     Dosage: 60 MG/M2 (EVERY 3 WEEKS)
  2. CYCLOPHOSPHAMIDE [Suspect]
     Indication: BREAST CANCER
     Dosage: 600 MG/M2 (EVERY 3 WEEKS)

REACTIONS (14)
  - ANAEMIA NEONATAL [None]
  - BLOOD PRESSURE SYSTOLIC DECREASED [None]
  - DRUG EXPOSURE DURING PREGNANCY [None]
  - HYPERBILIRUBINAEMIA NEONATAL [None]
  - HYPOGLYCAEMIA NEONATAL [None]
  - NEONATAL APNOEIC ATTACK [None]
  - NEONATAL DISORDER [None]
  - NEONATAL RESPIRATORY DISTRESS SYNDROME [None]
  - NEONATAL RESPIRATORY FAILURE [None]
  - NEONATAL TACHYPNOEA [None]
  - NEUTROPENIA NEONATAL [None]
  - PREMATURE BABY [None]
  - SEPSIS NEONATAL [None]
  - WHITE BLOOD CELL COUNT DECREASED [None]
